FAERS Safety Report 11351167 (Version 1)
Quarter: 2015Q3

REPORT INFORMATION
  Report Type: Spontaneous
  Country: US (occurrence: US)
  Receive Date: 20150807
  Receipt Date: 20150807
  Transmission Date: 20151125
  Serious: No
  Sender: FDA-Public Use
  Company Number: US-JNJFOC-20150406873

PATIENT
  Age: 30 Year
  Sex: Male
  Weight: 90.72 kg

DRUGS (3)
  1. MENS ROGAINE EXTRA STRENGTH [Suspect]
     Active Substance: MINOXIDIL
     Indication: ALOPECIA
     Route: 061
     Dates: end: 20150329
  2. MENS ROGAINE EXTRA STRENGTH [Suspect]
     Active Substance: MINOXIDIL
     Route: 061
  3. PENICILLIN [Concomitant]
     Active Substance: PENICILLIN
     Indication: ANALGESIC THERAPY
     Dosage: 500 MG/DAY, INTERVAL: 3 DAYS
     Route: 065

REACTIONS (2)
  - Dry skin [Not Recovered/Not Resolved]
  - Skin exfoliation [Not Recovered/Not Resolved]
